FAERS Safety Report 24163950 (Version 1)
Quarter: 2024Q3

REPORT INFORMATION
  Report Type: Spontaneous
  Country: US (occurrence: US)
  Receive Date: 20240801
  Receipt Date: 20240801
  Transmission Date: 20241017
  Serious: No
  Sender: UPSHER-SMITH
  Company Number: US-UPSHER-SMITH LABORATORIES, LLC-2023USL00933

PATIENT
  Age: 1 Year

DRUGS (2)
  1. VIGADRONE [Suspect]
     Active Substance: VIGABATRIN
     Indication: Tuberous sclerosis complex
     Dosage: UNK
     Route: 048
     Dates: start: 20220809
  2. VIGADRONE [Suspect]
     Active Substance: VIGABATRIN
     Dosage: 700 MG, 2X/DAY (DOSE INCREASED)
     Route: 048

REACTIONS (1)
  - Insomnia [Unknown]

NARRATIVE: CASE EVENT DATE: 20231005
